FAERS Safety Report 5099634-3 (Version None)
Quarter: 2006Q3

REPORT INFORMATION
  Report Type: 
  Country: None (occurrence: None)
  Receive Date: 20060906
  Receipt Date: 20060821
  Transmission Date: 20061208
  Serious: Yes (Hospitalization)
  Sender: FDA-Public Use
  Company Number: 2006100943

PATIENT
  Age: 29 Year
  Sex: Female

DRUGS (5)
  1. SERTRALINE [Suspect]
     Indication: TIC
     Dosage: 100 MG
  2. HALOPERIDOL [Suspect]
     Indication: TIC
     Dosage: {/= 15MG
  3. CLONAZEPAM [Suspect]
     Indication: TIC
     Dosage: 2 MG
  4. CLONIDINE [Suspect]
     Indication: TIC
     Dosage: 0.6 MG
  5. DESIPRAMINE HCL [Suspect]
     Indication: TIC
     Dosage: 75 MG

REACTIONS (5)
  - CONDITION AGGRAVATED [None]
  - EXTRAPYRAMIDAL DISORDER [None]
  - MUSCLE RIGIDITY [None]
  - TIC [None]
  - TREMOR [None]
